FAERS Safety Report 5353509-0 (Version None)
Quarter: 2007Q2

REPORT INFORMATION
  Report Type: 
  Country: None (occurrence: None)
  Receive Date: 20070612
  Receipt Date: 20070601
  Transmission Date: 20071010
  Serious: Yes (Other)
  Sender: FDA-Public Use
  Company Number: US-JNJFOC-20060903695

PATIENT
  Sex: Female
  Weight: 57.8 kg

DRUGS (1)
  1. ORTHO EVRA [Suspect]
     Indication: DRUG USE FOR UNKNOWN INDICATION

REACTIONS (4)
  - ASTHMA [None]
  - PULMONARY EMBOLISM [None]
  - RASH [None]
  - WEIGHT INCREASED [None]
